FAERS Safety Report 5692057-5 (Version None)
Quarter: 2008Q1

REPORT INFORMATION
  Report Type: 
  Country: None (occurrence: None)
  Receive Date: 20080331
  Receipt Date: 20080320
  Transmission Date: 20080703
  Serious: Yes (Hospitalization)
  Sender: FDA-Public Use
  Company Number: 2008SP005908

PATIENT
  Sex: Female

DRUGS (2)
  1. IMDUR [Suspect]
     Indication: DRUG USE FOR UNKNOWN INDICATION
     Dosage: 60 MG; QD;
     Dates: end: 20070101
  2. MONODUR (ISOSORBIDE MONONITRATE) [Suspect]
     Indication: DRUG USE FOR UNKNOWN INDICATION
     Dosage: 60 MG; QD; PO
     Route: 048
     Dates: end: 20080213

REACTIONS (3)
  - CORONARY ARTERY BYPASS [None]
  - HEART VALVE REPLACEMENT [None]
  - PNEUMONIA PRIMARY ATYPICAL [None]
